FAERS Safety Report 14476406 (Version 1)
Quarter: 2018Q1

REPORT INFORMATION
  Report Type: Spontaneous
  Country: US (occurrence: US)
  Receive Date: 20180201
  Receipt Date: 20180201
  Transmission Date: 20180509
  Serious: No
  Sender: FDA-Public Use
  Company Number: US-SA-2017SA221789

PATIENT
  Age: 61 Year
  Sex: Female

DRUGS (7)
  1. FLUCONAZOLE. [Concomitant]
     Active Substance: FLUCONAZOLE
  2. DULOXETINE. [Concomitant]
     Active Substance: DULOXETINE
  3. NITROFUR MAC [Concomitant]
     Active Substance: NITROFURANTOIN
  4. ESTRADIOL. [Concomitant]
     Active Substance: ESTRADIOL
  5. PRALUENT [Suspect]
     Active Substance: ALIROCUMAB
     Indication: MYOCARDIAL INFARCTION
     Route: 058
     Dates: start: 20170317
  6. METOPROLOL. [Concomitant]
     Active Substance: METOPROLOL
  7. ALIROCUMAB PREFILLED PEN [Suspect]
     Active Substance: ALIROCUMAB
     Indication: MYOCARDIAL INFARCTION
     Dates: start: 20170317

REACTIONS (1)
  - Injection site bruising [Not Recovered/Not Resolved]

NARRATIVE: CASE EVENT DATE: 2017
